FAERS Safety Report 5523644-2 (Version None)
Quarter: 2007Q4

REPORT INFORMATION
  Report Type: 
  Country: None (occurrence: None)
  Receive Date: 20071121
  Receipt Date: 20071112
  Transmission Date: 20080405
  Serious: Yes (Life-Threatening, Hospitalization)
  Sender: FDA-Public Use
  Company Number: DE-ABBOTT-07P-062-0424313-00

PATIENT
  Sex: Female
  Weight: 60 kg

DRUGS (3)
  1. HUMIRA [Suspect]
     Indication: PSORIATIC ARTHROPATHY
     Route: 058
     Dates: start: 20070601, end: 20071107
  2. ORAL CONTRACEPTIVE NOS [Concomitant]
     Indication: CONTRACEPTION
     Route: 048
  3. SKIN SALVE CONTAINING ESTRADIOL [Concomitant]
     Indication: PSORIATIC ARTHROPATHY

REACTIONS (5)
  - EYELID OEDEMA [None]
  - HYPERSENSITIVITY [None]
  - HYPOACUSIS [None]
  - LIP SWELLING [None]
  - RASH GENERALISED [None]
